FAERS Safety Report 4895286-3 (Version None)
Quarter: 2005Q4

REPORT INFORMATION
  Report Type: 
  Country: None (occurrence: None)
  Receive Date: 20051220
  Receipt Date: 20050627
  Transmission Date: 20060501
  Serious: Yes (Hospitalization)
  Sender: FDA-Public Use
  Company Number: US140247

PATIENT
  Age: 24 Year
  Sex: Male

DRUGS (10)
  1. ENBREL [Suspect]
     Indication: ANKYLOSING SPONDYLITIS
     Dosage: 25 MG, 2 IN 1 WEEKS
     Dates: start: 20050101, end: 20050601
  2. VALDECOXIB [Concomitant]
  3. QVAR 40 [Concomitant]
  4. CYCLOBENZAPRINE HCL [Concomitant]
  5. VICODIN [Concomitant]
  6. FOLIC ACID [Concomitant]
  7. METHOTREXATE [Concomitant]
  8. PROMETHAZINE HCL [Concomitant]
  9. PREDNISOLONE [Concomitant]
  10. IBUPROFEN [Concomitant]

REACTIONS (1)
  - ANAPHYLACTIC REACTION [None]
